FAERS Safety Report 5392581-9 (Version None)
Quarter: 2007Q3

REPORT INFORMATION
  Report Type: 
  Country: None (occurrence: None)
  Receive Date: 20070720
  Receipt Date: 20070712
  Transmission Date: 20080115
  Serious: Yes (Life-Threatening, Hospitalization)
  Sender: FDA-Public Use
  Company Number: FR-ABBOTT-07P-056-0359342-00

PATIENT
  Age: 20 Month
  Sex: Female

DRUGS (1)
  1. DEPAKENE [Suspect]
     Indication: MYOCLONIC EPILEPSY
     Route: 065
     Dates: end: 20070118

REACTIONS (12)
  - ANOREXIA [None]
  - ASTHENIA [None]
  - CYTOLYTIC HEPATITIS [None]
  - DECREASED APPETITE [None]
  - DYSPHAGIA [None]
  - ELECTROENCEPHALOGRAM ABNORMAL [None]
  - FALL [None]
  - HEPATIC FAILURE [None]
  - HEPATITIS CHOLESTATIC [None]
  - NAUSEA [None]
  - SALIVARY HYPERSECRETION [None]
  - TONSILLITIS [None]
